FAERS Safety Report 21661485 (Version 1)
Quarter: 2022Q4

REPORT INFORMATION
  Report Type: Spontaneous
  Country: GB (occurrence: GB)
  Receive Date: 20221130
  Receipt Date: 20221130
  Transmission Date: 20230112
  Serious: Yes (Hospitalization)
  Sender: FDA-Public Use
  Company Number: GB-AMGEN-GBRSP2022204706

PATIENT
  Age: 36 Year
  Sex: Male
  Weight: 93 kg

DRUGS (11)
  1. ADALIMUMAB [Suspect]
     Active Substance: ADALIMUMAB
     Indication: Psoriasis
     Dosage: 40 MILLIGRAM, Q2WK
     Route: 065
     Dates: start: 20190510
  2. ADALIMUMAB [Suspect]
     Active Substance: ADALIMUMAB
     Dosage: 40 MILLIGRAM, Q2WK
     Route: 065
     Dates: start: 20191101
  3. THIAMINE HYDROCHLORIDE [Concomitant]
     Active Substance: THIAMINE HYDROCHLORIDE
     Dosage: UNK
     Dates: start: 20181115
  4. LORAZEPAM [Concomitant]
     Active Substance: LORAZEPAM
     Dosage: UNK
     Dates: start: 20190514, end: 20190514
  5. HALOPERIDOL [Concomitant]
     Active Substance: HALOPERIDOL
     Dosage: UNK
     Dates: start: 20190514, end: 20190514
  6. LIBRIUM [Concomitant]
     Active Substance: CHLORDIAZEPOXIDE HYDROCHLORIDE
     Dosage: UNK
     Dates: start: 20190514, end: 20190514
  7. FOLIC ACID [Concomitant]
     Active Substance: FOLIC ACID
     Dosage: UNK
     Dates: start: 20190515
  8. CALCIUM CARBONATE\CHOLECALCIFEROL [Concomitant]
     Active Substance: CALCIUM CARBONATE\CHOLECALCIFEROL
     Dosage: UNK
     Dates: start: 20190515
  9. COVID-19 vaccine [Concomitant]
     Dosage: UNK
     Dates: start: 20210208, end: 20210208
  10. COVID-19 vaccine [Concomitant]
     Dosage: UNK
     Dates: start: 20210430, end: 20210430
  11. COVID-19 vaccine [Concomitant]
     Dosage: UNK
     Dates: start: 20211120, end: 20211120

REACTIONS (2)
  - Fall [Recovered/Resolved]
  - Alcohol abuse [Recovered/Resolved]

NARRATIVE: CASE EVENT DATE: 20190514
